FAERS Safety Report 9022548 (Version 2)
Quarter: 2014Q1

REPORT INFORMATION
  Report Type: Spontaneous
  Country: US (occurrence: US)
  Receive Date: 20130118
  Receipt Date: 20140117
  Transmission Date: 20141002
  Serious: No
  Sender: FDA-Public Use
  Company Number: US-GLAXOSMITHKLINE-A0971010A

PATIENT
  Age: 71 Year
  Sex: Male

DRUGS (2)
  1. PROMACTA [Suspect]
     Dosage: 25MG PER DAY
     Route: 048
     Dates: start: 20110324, end: 20120322
  2. UNSPECIFIED MEDICATION [Concomitant]

REACTIONS (2)
  - Drug ineffective [Unknown]
  - Platelet disorder [Unknown]
